FAERS Safety Report 9643178 (Version 1)
Quarter: 2013Q4

REPORT INFORMATION
  Report Type: Spontaneous
  Country: US (occurrence: None)
  Receive Date: 20131022
  Receipt Date: 20131022
  Transmission Date: 20140711
  Serious: Yes (Other)
  Sender: FDA-Public Use
  Company Number: 2013-US-S000592

PATIENT
  Age: 44 Year
  Sex: Male

DRUGS (1)
  1. XYREM [Suspect]
     Indication: NARCOLEPSY
     Dosage: 2.25 G, BID FOR 1 WEEK, ORAL
     Route: 048
     Dates: start: 201105, end: 2011

REACTIONS (2)
  - Convulsion [None]
  - Drug level above therapeutic [None]
